FAERS Safety Report 15389949 (Version 1)
Quarter: 2018Q3

REPORT INFORMATION
  Report Type: Report from Study
  Country: US (occurrence: US)
  Receive Date: 20180917
  Receipt Date: 20180917
  Transmission Date: 20181010
  Serious: Yes (Death, Other)
  Sender: FDA-Public Use
  Company Number: US-AUROBINDO-AUR-APL-2018-045749

PATIENT
  Age: 38 Year
  Sex: Female

DRUGS (1)
  1. ACETAMINOPHEN. [Suspect]
     Active Substance: ACETAMINOPHEN
     Indication: PRODUCT USED FOR UNKNOWN INDICATION
     Dosage: UNK
     Route: 065

REACTIONS (16)
  - Haemolysis [Fatal]
  - Acute lung injury [Fatal]
  - Pancytopenia [Fatal]
  - Tachycardia [Fatal]
  - Coagulopathy [Fatal]
  - Coma [Fatal]
  - Hepatotoxicity [Fatal]
  - Gastrointestinal haemorrhage [Fatal]
  - Thrombocytopenia [Fatal]
  - Hypotension [Fatal]
  - Metabolic acidosis [Fatal]
  - Anion gap [Fatal]
  - Myocardial ischaemia [Fatal]
  - Depressed level of consciousness [Fatal]
  - Acute kidney injury [Fatal]
  - Rhabdomyolysis [Fatal]
